FAERS Safety Report 5002144-2 (Version None)
Quarter: 2006Q2

REPORT INFORMATION
  Report Type: 
  Country: None (occurrence: None)
  Receive Date: 20060515
  Receipt Date: 20051123
  Transmission Date: 20061013
  Serious: Yes (Hospitalization, Other)
  Sender: FDA-Public Use
  Company Number: US-MERCK-0511USA04042

PATIENT
  Age: 63 Year
  Sex: Female
  Weight: 52 kg

DRUGS (11)
  1. VIOXX [Suspect]
     Indication: ARTHRALGIA
     Route: 048
     Dates: start: 20011129, end: 20040501
  2. VIOXX [Suspect]
     Indication: OSTEOARTHRITIS
     Route: 048
     Dates: start: 20011129, end: 20040501
  3. VERAPAMIL [Concomitant]
     Indication: HYPERTENSION
     Route: 065
  4. LOTENSIN [Concomitant]
     Indication: HYPERTENSION
     Route: 065
  5. LIPITOR [Concomitant]
     Indication: BLOOD CHOLESTEROL INCREASED
     Route: 065
     Dates: start: 20020501
  6. VENTILAN (ALBUTEROL) [Concomitant]
     Indication: ASTHMA
     Route: 065
  7. [THERAPY UNSPECIFIED] [Concomitant]
     Route: 065
  8. ASPIRIN [Concomitant]
     Route: 065
  9. ADVIL [Concomitant]
     Route: 065
  10. ACTONEL [Concomitant]
     Route: 065
  11. APAP TAB [Concomitant]
     Route: 065

REACTIONS (12)
  - ADVERSE DRUG REACTION [None]
  - ARTERIAL OCCLUSIVE DISEASE [None]
  - ARTERIOSCLEROSIS [None]
  - CHEST DISCOMFORT [None]
  - CHEST PAIN [None]
  - COLITIS ISCHAEMIC [None]
  - CORONARY ARTERY DISEASE [None]
  - INTESTINAL HAEMORRHAGE [None]
  - MYOCARDIAL INFARCTION [None]
  - PNEUMONIA [None]
  - PULMONARY CONGESTION [None]
  - SPINAL CORD DISORDER [None]
